FAERS Safety Report 10590637 (Version 2)
Quarter: 2014Q4

REPORT INFORMATION
  Report Type: Spontaneous
  Country: DE (occurrence: DE)
  Receive Date: 20141118
  Receipt Date: 20141121
  Transmission Date: 20150529
  Serious: Yes (Congenital Anomaly, Other)
  Sender: FDA-Public Use
  Company Number: DE-PFIZER INC-2014310997

PATIENT
  Sex: Female

DRUGS (3)
  1. FEMIBION [Concomitant]
     Active Substance: VITAMINS
     Indication: PROPHYLAXIS OF NEURAL TUBE DEFECT
     Dosage: UNK, 3.-33. GESTATIONAL WEEK
     Route: 064
  2. PANTOPRAZOLE [Suspect]
     Active Substance: PANTOPRAZOLE SODIUM
     Indication: DYSPEPSIA
     Dosage: 20 MG, DAILY, WEEK 0-9, 10-13 AND 26-30
     Route: 064
  3. CITALOPRAM [Suspect]
     Active Substance: CITALOPRAM HYDROBROMIDE
     Indication: ANXIETY DISORDER
     Dosage: 15 MG, DAILY, 0.-33. GESTATIONAL WEEK
     Route: 064
     Dates: start: 20130125, end: 20130913

REACTIONS (3)
  - Feeding disorder neonatal [Recovered/Resolved]
  - Maternal exposure during pregnancy [Recovering/Resolving]
  - Premature baby [Recovering/Resolving]

NARRATIVE: CASE EVENT DATE: 20130913
